FAERS Safety Report 8831160 (Version 2)
Quarter: 2012Q4

REPORT INFORMATION
  Report Type: Report from Study
  Country: US (occurrence: US)
  Receive Date: 20121008
  Receipt Date: 20121024
  Transmission Date: 20130627
  Serious: Yes (Hospitalization, Other)
  Sender: FDA-Public Use
  Company Number: US-ASTELLAS-2012US008233

PATIENT
  Sex: Female
  Weight: 49 kg

DRUGS (13)
  1. BLINDED ERLOTINIB TABLET [Suspect]
     Indication: LARYNGEAL CANCER RECURRENT
     Dosage: 150 mg, UID/QD
     Route: 048
     Dates: start: 20120829, end: 20120905
  2. DOCETAXEL [Suspect]
     Indication: LARYNGEAL CANCER RECURRENT
     Dosage: UNK
     Route: 065
     Dates: start: 20120829, end: 20120905
  3. CARBOPLATIN [Suspect]
     Indication: LARYNGEAL CANCER RECURRENT
     Dosage: UNK
     Route: 065
     Dates: start: 20120829, end: 20120905
  4. CISPLATIN [Suspect]
     Indication: LARYNGEAL CANCER RECURRENT
     Dosage: UNK
     Route: 065
  5. FENTANYL [Concomitant]
     Indication: PRODUCT USED FOR UNKNOWN INDICATION
     Dosage: 50 ug, Unknown/D
     Route: 065
  6. PREVACID [Concomitant]
     Indication: PRODUCT USED FOR UNKNOWN INDICATION
     Dosage: UNK
     Route: 065
  7. METHADONE [Concomitant]
     Indication: PRODUCT USED FOR UNKNOWN INDICATION
     Dosage: UNK
     Route: 065
  8. NORCO [Concomitant]
     Indication: PRODUCT USED FOR UNKNOWN INDICATION
     Dosage: UNK
     Route: 065
  9. LYRICA [Concomitant]
     Indication: PRODUCT USED FOR UNKNOWN INDICATION
     Dosage: UNK
     Route: 065
  10. ZOLOFT [Concomitant]
     Indication: PRODUCT USED FOR UNKNOWN INDICATION
     Dosage: UNK
     Route: 065
  11. VALIUM                             /00017001/ [Concomitant]
     Indication: PRODUCT USED FOR UNKNOWN INDICATION
     Dosage: UNK
     Route: 065
  12. AMBIEN [Concomitant]
     Indication: PRODUCT USED FOR UNKNOWN INDICATION
     Dosage: UNK
     Route: 065
  13. SYNTHROID [Concomitant]
     Indication: PRODUCT USED FOR UNKNOWN INDICATION
     Dosage: UNK
     Route: 065

REACTIONS (15)
  - Off label use [Unknown]
  - Hypoalbuminaemia [Not Recovered/Not Resolved]
  - Diarrhoea [Recovered/Resolved]
  - Decubitus ulcer [Unknown]
  - Skin fissures [Unknown]
  - Oedema peripheral [Unknown]
  - General physical condition abnormal [Unknown]
  - Vomiting [Unknown]
  - Septic shock [Unknown]
  - Febrile neutropenia [Recovered/Resolved]
  - Non-cardiac chest pain [Recovered/Resolved]
  - Klebsiella infection [Unknown]
  - Escherichia infection [Unknown]
  - Face oedema [Not Recovered/Not Resolved]
  - Malnutrition [Not Recovered/Not Resolved]
